FAERS Safety Report 25237079 (Version 5)
Quarter: 2025Q4

REPORT INFORMATION
  Report Type: Report from Study
  Country: CN (occurrence: CN)
  Receive Date: 20250425
  Receipt Date: 20251002
  Transmission Date: 20260118
  Serious: Yes (Hospitalization, Other)
  Sender: ABBVIE
  Company Number: CN-ABBVIE-6238109

PATIENT
  Age: 54 Year
  Sex: Male
  Weight: 75 kg

DRUGS (21)
  1. OZURDEX [Suspect]
     Active Substance: DEXAMETHASONE
     Indication: Diabetic retinal oedema
     Dosage: TIME INTERVAL: AS NECESSARY: 700 MICROGRAM
     Route: 050
     Dates: start: 20250304, end: 20250304
  2. OZURDEX [Suspect]
     Active Substance: DEXAMETHASONE
     Dosage: TIME INTERVAL: AS NECESSARY: 700 MICROGRAM
     Route: 050
     Dates: start: 20241120, end: 20241120
  3. OZURDEX [Suspect]
     Active Substance: DEXAMETHASONE
     Dosage: TIME INTERVAL: AS NECESSARY: 700 MICROGRAM
     Route: 050
     Dates: start: 20240523, end: 20240523
  4. BENOXINATE HYDROCHLORIDE [Concomitant]
     Active Substance: BENOXINATE HYDROCHLORIDE
     Indication: Prophylaxis
     Route: 047
     Dates: start: 20250304, end: 20250304
  5. TAFLUPROST [Concomitant]
     Active Substance: TAFLUPROST
     Indication: Ocular hypertension
     Route: 047
     Dates: start: 20250416
  6. IOVERSOL [Concomitant]
     Active Substance: IOVERSOL
     Indication: Computerised tomogram heart
     Dosage: 85 MILLILITER
     Route: 042
     Dates: start: 20250303, end: 20250303
  7. OFLOXACIN [Concomitant]
     Active Substance: OFLOXACIN
     Indication: Prophylaxis
     Dosage: FREQUENCY: 0.25 DAYS
     Route: 047
     Dates: start: 20250226
  8. CARTEOLOL HYDROCHLORIDE [Concomitant]
     Active Substance: CARTEOLOL HYDROCHLORIDE
     Indication: Prophylaxis
     Dosage: FREQUENCY: 0.5 DAYS
     Route: 047
     Dates: start: 20250226
  9. Tropicamide Phenylephrine [Concomitant]
     Indication: Prophylaxis
     Dosage: 1 DROP
     Route: 047
     Dates: start: 20250304, end: 20250304
  10. METFORMIN HYDROCHLORIDE [Concomitant]
     Active Substance: METFORMIN HYDROCHLORIDE
     Indication: Type 2 diabetes mellitus
     Dosage: FREQUENCY: 0.5 DAYS?DOSE FORM: EXTENDED RELEASE TABLET
     Route: 048
     Dates: start: 2010
  11. BRIMONIDINE TARTRATE [Concomitant]
     Active Substance: BRIMONIDINE TARTRATE
     Indication: Prophylaxis
     Dosage: FREQUENCY: 0.5 DAYS
     Route: 047
     Dates: start: 20250226
  12. ACETAZOLAMIDE [Concomitant]
     Active Substance: ACETAZOLAMIDE
     Indication: Ocular hypertension
     Dosage: FREQUENCY : 0.5 DAYS
     Route: 048
     Dates: start: 20250416
  13. PRAVASTATIN SODIUM [Concomitant]
     Active Substance: PRAVASTATIN SODIUM
     Indication: Arteriosclerosis coronary artery
     Dosage: ONE TABLET
     Route: 048
     Dates: start: 20250303
  14. SEMAGLUTIDE [Concomitant]
     Active Substance: SEMAGLUTIDE
     Indication: Type 2 diabetes mellitus
     Route: 058
     Dates: start: 2022
  15. CANAGLIFLOZIN [Concomitant]
     Active Substance: CANAGLIFLOZIN
     Indication: Type 2 diabetes mellitus
     Dosage: 1 TABLET
     Route: 048
     Dates: start: 2010
  16. METHYLCOBALAMIN [Concomitant]
     Active Substance: METHYLCOBALAMIN
     Indication: Prophylaxis
     Route: 048
     Dates: start: 2010
  17. PANTOPRAZOLE SODIUM [Concomitant]
     Active Substance: PANTOPRAZOLE SODIUM
     Indication: Gastrointestinal disorder prophylaxis
     Dosage: ONE TABLET, ENTERIC-COATED TABLETS
     Route: 048
     Dates: start: 202504
  18. OLMESARTAN MEDOXOMIL [Concomitant]
     Active Substance: OLMESARTAN MEDOXOMIL
     Indication: Hypertension
     Route: 048
     Dates: start: 2024
  19. CLOPIDOGREL BISULFATE [Concomitant]
     Active Substance: CLOPIDOGREL BISULFATE
     Indication: Arteriosclerosis coronary artery
     Dosage: ONE TABLET
     Route: 048
     Dates: start: 202504
  20. BRINZOLAMIDE [Concomitant]
     Active Substance: BRINZOLAMIDE
     Indication: Ocular hypertension
     Dosage: TWO DROP
     Route: 047
     Dates: start: 20250509
  21. JOLETHIN [Concomitant]
     Active Substance: JOLETHIN
     Indication: Diabetic retinopathy
     Dosage: TIME INTERVAL: 0.33333333 DAYS
     Route: 048
     Dates: start: 20250321

REACTIONS (4)
  - Arteriosclerosis coronary artery [Recovered/Resolved]
  - Hypercholesterolaemia [Recovering/Resolving]
  - Chronic kidney disease [Recovering/Resolving]
  - Hyperuricaemia [Recovering/Resolving]

NARRATIVE: CASE EVENT DATE: 20250413
